FAERS Safety Report 16592840 (Version 2)
Quarter: 2019Q3

REPORT INFORMATION
  Report Type: Spontaneous
  Country: US (occurrence: US)
  Receive Date: 20190718
  Receipt Date: 20190724
  Transmission Date: 20191004
  Serious: Yes (Other)
  Sender: FDA-Public Use
  Company Number: US-PFIZER INC-2019304315

PATIENT
  Age: 8 Month
  Sex: Female

DRUGS (2)
  1. BICILLIN L-A [Suspect]
     Active Substance: PENICILLIN G BENZATHINE
     Indication: RESPIRATORY TRACT INFECTION
     Dosage: 0.6 IU, UNK (SUSPENSION, VOLUME 2ML)
     Route: 030
  2. BICILLIN L-A [Suspect]
     Active Substance: PENICILLIN G BENZATHINE
     Dosage: 2 CC, UNK
     Dates: start: 19621127

REACTIONS (4)
  - Embolia cutis medicamentosa [Recovered/Resolved]
  - Arterial spasm [Recovered/Resolved]
  - Hypersensitivity vasculitis [Recovered/Resolved]
  - Peripheral artery thrombosis [Recovered/Resolved]
